FAERS Safety Report 4340616-4 (Version None)
Quarter: 2004Q2

REPORT INFORMATION
  Report Type: 
  Country: None (occurrence: None)
  Receive Date: 20040416
  Receipt Date: 20040416
  Transmission Date: 20050107
  Serious: No
  Sender: FDA-Public Use
  Company Number: None

PATIENT
  Age: 22 Year
  Sex: Male
  Weight: 81.6475 kg

DRUGS (1)
  1. GAMMAGARD [Suspect]
     Dates: start: 20040412

REACTIONS (1)
  - PHARMACEUTICAL PRODUCT COMPLAINT [None]
